FAERS Safety Report 6867773-X (Version None)
Quarter: 2010Q3

REPORT INFORMATION
  Report Type: 
  Country: None (occurrence: None)
  Receive Date: 20100721
  Receipt Date: 20100721
  Transmission Date: 20110219
  Serious: No
  Sender: FDA-Public Use
  Company Number: None

PATIENT
  Sex: Female
  Weight: 60.3284 kg

DRUGS (1)
  1. NEURONTIN [Suspect]
     Indication: RADICULAR PAIN
     Dosage: 300MG QHS PO
     Route: 048
     Dates: start: 20080101

REACTIONS (1)
  - DRUG INEFFECTIVE [None]
